FAERS Safety Report 8392937-6 (Version None)
Quarter: 2012Q2

REPORT INFORMATION
  Report Type: 
  Country: None (occurrence: None)
  Receive Date: 20120525
  Receipt Date: 20120525
  Transmission Date: 20120825
  Serious: Yes (Other)
  Sender: FDA-Public Use
  Company Number: None

PATIENT
  Age: 62 Year
  Sex: Male

DRUGS (2)
  1. RIBAVIRIN [Suspect]
     Indication: COMA
     Dosage: 600MG BID PO
     Route: 048
  2. PEGASYS [Suspect]
     Indication: COMA
     Dosage: 180MCG WEEKLY SQ
     Route: 058
     Dates: start: 20120202

REACTIONS (4)
  - BALANCE DISORDER [None]
  - HERPES VIRUS INFECTION [None]
  - PAIN IN EXTREMITY [None]
  - DYSARTHRIA [None]
